FAERS Safety Report 6936882-9 (Version None)
Quarter: 2010Q3

REPORT INFORMATION
  Report Type: 
  Country: None (occurrence: None)
  Receive Date: 20100823
  Receipt Date: 20100812
  Transmission Date: 20110219
  Serious: Yes (Other)
  Sender: FDA-Public Use
  Company Number: CA-JNJFOC-20100207978

PATIENT
  Sex: Male
  Weight: 71.3 kg

DRUGS (15)
  1. REMICADE [Suspect]
     Indication: RHEUMATOID ARTHRITIS
     Route: 042
  2. REMICADE [Suspect]
     Route: 042
  3. ARAVA [Concomitant]
  4. PLAQUENIL [Concomitant]
  5. MTX [Concomitant]
  6. NAPROXEN [Concomitant]
  7. PRIMIDONE [Concomitant]
  8. NEXIUM [Concomitant]
  9. VITAMIN A [Concomitant]
  10. VITAMIN B [Concomitant]
  11. VITAMIN D [Concomitant]
  12. VITAMIN E (TOCOPHERYL ACETATE) [Concomitant]
  13. GARLIC [Concomitant]
  14. HALIBUT OIL [Concomitant]
  15. INDERAL [Concomitant]

REACTIONS (7)
  - DRUG INEFFECTIVE [None]
  - HERPES ZOSTER [None]
  - HYPOAESTHESIA [None]
  - HYPOAESTHESIA FACIAL [None]
  - NERVOUS SYSTEM DISORDER [None]
  - PARAESTHESIA [None]
  - URTICARIA [None]
